FAERS Safety Report 7183709-9 (Version None)
Quarter: 2010Q4

REPORT INFORMATION
  Report Type: 
  Country: None (occurrence: None)
  Receive Date: 20101222
  Receipt Date: 20101215
  Transmission Date: 20110411
  Serious: Yes (Other)
  Sender: FDA-Public Use
  Company Number: US-BAXTER-2010BH027464

PATIENT
  Sex: Female
  Weight: 66 kg

DRUGS (13)
  1. GAMMAGARD LIQUID [Suspect]
     Indication: NEUROPATHY PERIPHERAL
     Route: 042
     Dates: start: 20071003
  2. GAMMAGARD LIQUID [Suspect]
     Indication: OFF LABEL USE
     Route: 042
     Dates: start: 20071003
  3. GAMMAGARD LIQUID [Suspect]
     Route: 065
  4. GAMMAGARD LIQUID [Suspect]
     Route: 065
  5. ACTONEL [Concomitant]
     Route: 048
     Dates: start: 20070918
  6. SIMVASTATIN [Concomitant]
     Route: 048
     Dates: start: 20070918
  7. ASPIRIN [Concomitant]
     Route: 048
     Dates: start: 20070918
  8. ALPHA LIPOIC ACID [Concomitant]
     Route: 048
     Dates: start: 20070918
  9. LOVAZA [Concomitant]
     Route: 048
     Dates: start: 20070918
  10. LEXAPRO [Concomitant]
     Route: 048
     Dates: start: 20090323
  11. KLONOPIN [Concomitant]
     Route: 048
     Dates: start: 20090504
  12. APAP TAB [Concomitant]
     Indication: PREMEDICATION
     Route: 048
  13. DIPHENHYDRAMINE [Concomitant]
     Indication: PREMEDICATION
     Route: 048

REACTIONS (1)
  - ORAL HERPES [None]
